FAERS Safety Report 22606877 (Version 1)
Quarter: 2023Q2

REPORT INFORMATION
  Report Type: Spontaneous
  Country: US (occurrence: None)
  Receive Date: 20230608
  Receipt Date: 20230608
  Transmission Date: 20230722
  Serious: Yes (Other)
  Sender: FDA-Public Use
  Company Number: None

PATIENT
  Age: 66 Year
  Sex: Female

DRUGS (1)
  1. PEPPERMINT OIL [Suspect]
     Active Substance: PEPPERMINT OIL

REACTIONS (2)
  - Tissue irritation [None]
  - Oral mucosal eruption [None]

NARRATIVE: CASE EVENT DATE: 20230511
